FAERS Safety Report 8789556 (Version 2)
Quarter: 2012Q4

REPORT INFORMATION
  Report Type: Spontaneous
  Country: US (occurrence: None)
  Receive Date: 20120905
  Receipt Date: 20120914
  Transmission Date: 20130627
  Serious: Yes (Hospitalization)
  Sender: FDA-Public Use
  Company Number: ACO_31733_2012

PATIENT
  Age: 32 Year
  Sex: Female

DRUGS (11)
  1. AMPYRA [Suspect]
     Indication: DRUG USE FOR UNKNOWN INDICATION
     Route: 048
     Dates: start: 20120731, end: 20120805
  2. METFORMIN (METFORMIN HYDROCHLORIDE) [Concomitant]
  3. FOLIC ACID (FOLIC ACID) [Concomitant]
  4. LANTUS (INSULIN GLARGINE) [Concomitant]
  5. VITAMIN B6 (PYRIDOXINE HYDROCHLORIDE) [Concomitant]
  6. LEVETIRACETAM (LEVETIRACETAM) [Concomitant]
  7. AMANTADINE (AMANTADINE HYDROCHLORIDE) [Concomitant]
  8. BACLOFEN (BACLOFEN) (BACLOFEN) [Concomitant]
  9. ABILIFY (ARIPIPRAZOLE) [Concomitant]
  10. AMBIEN (ZOLPIDEM TARTRATE) [Concomitant]
  11. COPAXONE (GLATIRAMER ACETATE) [Concomitant]

REACTIONS (2)
  - Convulsion [None]
  - Respiratory distress [None]
